FAERS Safety Report 4335799-6 (Version None)
Quarter: 2004Q2

REPORT INFORMATION
  Report Type: 
  Country: None (occurrence: None)
  Receive Date: 20040409
  Receipt Date: 20040225
  Transmission Date: 20050107
  Serious: Yes (Life-Threatening, Hospitalization, Other)
  Sender: FDA-Public Use
  Company Number: PHFR2004GB01201

PATIENT
  Age: 56 Year
  Sex: Female
  Weight: 80 kg

DRUGS (8)
  1. ZOMETA [Suspect]
     Indication: METASTASES TO BONE
     Dosage: 4 MG, QMO
     Dates: start: 20031219, end: 20040101
  2. SODIUM GLUCONATE [Concomitant]
     Route: 065
  3. CALCIUM WITH VITAMIN D [Concomitant]
     Route: 065
  4. TAXOL [Concomitant]
     Dosage: 60 MG, QW
     Route: 042
     Dates: start: 20040119, end: 20040304
  5. HERCEPTIN [Concomitant]
     Dosage: 298.2 MG, TIW
     Route: 042
  6. GABAPENTIN [Concomitant]
     Indication: NEUROPATHIC PAIN
     Dosage: 900MG/DAY
     Route: 048
  7. FLUOXETINE [Concomitant]
     Indication: DEPRESSION
     Dosage: 20 MG/DAY
     Route: 048
     Dates: start: 20030101
  8. EXEMESTANE [Concomitant]
     Indication: BREAST CANCER
     Dosage: 25MG/DAY
     Route: 048
     Dates: start: 20030101

REACTIONS (3)
  - HYPOCALCAEMIA [None]
  - MYOCLONUS [None]
  - PARAESTHESIA [None]
